FAERS Safety Report 12519238 (Version 1)
Quarter: 2016Q3

REPORT INFORMATION
  Report Type: Not Available
  Country: DE (occurrence: DE)
  Receive Date: 20160701
  Receipt Date: 20160701
  Transmission Date: 20161109
  Serious: No
  Sender: FDA-Public Use
  Company Number: DE-LUPIN PHARMACEUTICALS INC.-2015-01726

PATIENT
  Sex: Male

DRUGS (1)
  1. SIMVASTATIN-HORMOSAN 10 MG FILMTABLETTEN [Suspect]
     Active Substance: SIMVASTATIN
     Indication: PRODUCT USED FOR UNKNOWN INDICATION
     Route: 065
     Dates: start: 201502

REACTIONS (2)
  - Flatulence [Unknown]
  - Diarrhoea [Unknown]
